FAERS Safety Report 6970848-8 (Version None)
Quarter: 2010Q3

REPORT INFORMATION
  Report Type: 
  Country: None (occurrence: None)
  Receive Date: 20100908
  Receipt Date: 20100827
  Transmission Date: 20110219
  Serious: Yes (Hospitalization)
  Sender: FDA-Public Use
  Company Number: B0569290A

PATIENT
  Sex: Female
  Weight: 39 kg

DRUGS (4)
  1. RELENZA [Suspect]
     Indication: INFLUENZA
     Dosage: 10MG TWICE PER DAY
     Route: 055
     Dates: start: 20090309, end: 20090311
  2. LOXONIN [Suspect]
     Indication: HEADACHE
     Route: 048
     Dates: start: 20090309, end: 20090311
  3. MUCOSTA [Suspect]
     Indication: PRODUCT USED FOR UNKNOWN INDICATION
     Route: 048
     Dates: start: 20090309
  4. PRIMPERAN TAB [Suspect]
     Indication: PRODUCT USED FOR UNKNOWN INDICATION
     Route: 048
     Dates: start: 20090309, end: 20090311

REACTIONS (5)
  - DRUG ERUPTION [None]
  - GENERALISED ERYTHEMA [None]
  - PYREXIA [None]
  - RASH [None]
  - SWELLING [None]
